FAERS Safety Report 8889757 (Version 1)
Quarter: 2012Q4

REPORT INFORMATION
  Report Type: 
  Country: PE (occurrence: PE)
  Receive Date: 20121107
  Receipt Date: 20121107
  Transmission Date: 20130627
  Serious: Yes (Hospitalization, Other)
  Sender: FDA-Public Use
  Company Number: PE-JNJFOC-20121101510

PATIENT

DRUGS (9)
  1. DOXORUBICIN [Suspect]
     Indication: NON-HODGKIN^S LYMPHOMA
     Dosage: A-CHOP regimen
     Route: 042
  2. DOXORUBICIN [Suspect]
     Indication: NON-HODGKIN^S LYMPHOMA
     Dosage: CHOP regimen
     Route: 042
  3. CYCLOPHOSPHAMIDE [Suspect]
     Indication: NON-HODGKIN^S LYMPHOMA
     Dosage: CHOP regimen
     Route: 065
  4. CYCLOPHOSPHAMIDE [Suspect]
     Indication: NON-HODGKIN^S LYMPHOMA
     Dosage: A-CHOP regimen
     Route: 065
  5. VINCRISTINE [Suspect]
     Indication: NON-HODGKIN^S LYMPHOMA
     Dosage: (Maximum 2 mg) on day 1 CHOP regimen
     Route: 065
  6. VINCRISTINE [Suspect]
     Indication: NON-HODGKIN^S LYMPHOMA
     Dosage: (Maximum 2 mg) on day 1 A-CHOP regimen
     Route: 065
  7. PREDNISONE [Suspect]
     Indication: NON-HODGKIN^S LYMPHOMA
     Dosage: 5 days CHOP regimen
     Route: 065
  8. PREDNISONE [Suspect]
     Indication: NON-HODGKIN^S LYMPHOMA
     Dosage: 5 days A-CHOP regimen
     Route: 065
  9. AMIFOSTINE [Suspect]
     Indication: NON-HODGKIN^S LYMPHOMA
     Dosage: 6 cycles on day 1 (added to normal saline to a total vol. of 100 mL- 15 minutes before chemotherapy
     Route: 042

REACTIONS (16)
  - Asthenia [Unknown]
  - Febrile neutropenia [Unknown]
  - Neutropenia [Unknown]
  - Anaemia [Unknown]
  - Leukopenia [Unknown]
  - Ventricular extrasystoles [Unknown]
  - Atrial fibrillation [Unknown]
  - Alanine aminotransferase increased [Unknown]
  - Aspartate aminotransferase increased [Unknown]
  - Diarrhoea [Unknown]
  - Thrombocytopenia [Unknown]
  - Toxicity to various agents [Unknown]
  - Vomiting [Unknown]
  - Fatigue [Unknown]
  - Neuropathy peripheral [Unknown]
  - Blood creatinine increased [Unknown]
